FAERS Safety Report 15531436 (Version 3)
Quarter: 2018Q4

REPORT INFORMATION
  Report Type: Report from Study
  Country: None (occurrence: US)
  Receive Date: 20181019
  Receipt Date: 20181212
  Transmission Date: 20190205
  Serious: Yes (Hospitalization)
  Sender: FDA-Public Use
  Company Number: US-ABBVIE-18K-163-2521797-00

PATIENT
  Age: 76 Year
  Sex: Male
  Weight: 75.82 kg

DRUGS (25)
  1. HUMIRA [Suspect]
     Active Substance: ADALIMUMAB
     Indication: CROHN^S DISEASE
     Route: 058
     Dates: start: 20170918
  2. DIGOXIN. [Concomitant]
     Active Substance: DIGOXIN
  3. ASPIRIN. [Concomitant]
     Active Substance: ASPIRIN
     Indication: ATRIAL FIBRILLATION
  4. VITAMIN D3 [Concomitant]
     Active Substance: CHOLECALCIFEROL
     Indication: VITAMIN SUPPLEMENTATION
  5. SAW PALMETTO [Concomitant]
     Active Substance: HERBALS\SAW PALMETTO
     Indication: PHYTOTHERAPY
  6. TURMERIC [Concomitant]
     Active Substance: HERBALS\TURMERIC
     Indication: PHYTOTHERAPY
  7. VITAMIN B COMPLEX [Concomitant]
     Active Substance: CYANOCOBALAMIN\DEXPANTHENOL\NIACINAMIDE\PYRIDOXINE HYDROCHLORIDE\RIBOFLAVIN 5^-PHOSPHATE SODIUM\THIAMINE HYDROCHLORIDE\VITAMIN B COMPLEX
     Indication: VITAMIN SUPPLEMENTATION
  8. VITAMIN C [Concomitant]
     Active Substance: ASCORBIC ACID
     Indication: VITAMIN SUPPLEMENTATION
  9. PROBIOTIC [Concomitant]
     Active Substance: PROBIOTICS NOS
     Indication: PROBIOTIC THERAPY
  10. DIGOXIN. [Concomitant]
     Active Substance: DIGOXIN
  11. FLAX OIL [Concomitant]
     Indication: NUTRITIONAL SUPPLEMENTATION
  12. FLAX OIL [Concomitant]
     Indication: NUTRITIONAL SUPPLEMENTATION
  13. CALCIUM [Concomitant]
     Active Substance: CALCIUM
     Indication: MINERAL SUPPLEMENTATION
  14. FINASTERIDE. [Concomitant]
     Active Substance: FINASTERIDE
     Indication: URINARY TRACT DISORDER
  15. TAMSULOSIN [Concomitant]
     Active Substance: TAMSULOSIN
     Indication: URINARY TRACT DISORDER
  16. LOSARTAN. [Concomitant]
     Active Substance: LOSARTAN
     Indication: BLOOD PRESSURE MEASUREMENT
  17. SULFASALAZINE. [Concomitant]
     Active Substance: SULFASALAZINE
     Indication: CROHN^S DISEASE
     Dosage: PILLS
     Dates: start: 20170721
  18. MONTELUKAST [Concomitant]
     Active Substance: MONTELUKAST SODIUM
     Indication: SINUS DISORDER
  19. DIGOXIN. [Concomitant]
     Active Substance: DIGOXIN
     Indication: ATRIAL FIBRILLATION
  20. COENZYME Q10 [Concomitant]
     Active Substance: UBIDECARENONE
     Indication: SUPPLEMENTATION THERAPY
  21. FLAX OIL [Concomitant]
     Indication: NUTRITIONAL SUPPLEMENTATION
  22. MILK THISTLE [Concomitant]
     Active Substance: DIETARY SUPPLEMENT\HERBALS\MILK THISTLE
     Indication: PHYTOTHERAPY
  23. ALLOPURINOL. [Concomitant]
     Active Substance: ALLOPURINOL
     Indication: GOUT
  24. FLAX OIL [Concomitant]
     Indication: NUTRITIONAL SUPPLEMENTATION
  25. HAWTHORN EXTRACT [Concomitant]
     Indication: PHYTOTHERAPY

REACTIONS (9)
  - Biliary tract infection [Recovered/Resolved]
  - Asthenia [Unknown]
  - Fatigue [Unknown]
  - Hepatic infection [Recovered/Resolved]
  - Staphylococcal infection [Unknown]
  - Bile duct obstruction [Recovering/Resolving]
  - Listless [Unknown]
  - Essential tremor [Unknown]
  - Kidney infection [Recovered/Resolved]
